FAERS Safety Report 8352888-X (Version None)
Quarter: 2012Q1

REPORT INFORMATION
  Report Type: 
  Country: None (occurrence: None)
  Receive Date: 20120315
  Receipt Date: 20110420
  Transmission Date: 20120608
  Serious: No
  Sender: FDA-Public Use
  Company Number: PHHY2011US34943

PATIENT
  Age: 45 Year
  Sex: Female

DRUGS (5)
  1. BACLOFEN [Concomitant]
  2. CLONIDINE [Concomitant]
  3. GILENYA [Suspect]
     Dosage: 0.5 MG, QD, ORAL
     Route: 048
  4. EFFEXOR [Concomitant]
  5. ABILIFY [Concomitant]

REACTIONS (2)
  - LIMB DISCOMFORT [None]
  - ARTHRALGIA [None]
